FAERS Safety Report 9932378 (Version 1)
Quarter: 2014Q1

REPORT INFORMATION
  Report Type: Spontaneous
  Country: US (occurrence: US)
  Receive Date: 20140228
  Receipt Date: 20140228
  Transmission Date: 20141002
  Serious: No
  Sender: FDA-Public Use
  Company Number: US-GLAXOSMITHKLINE-A1009650A

PATIENT
  Age: 45 Year
  Sex: Female
  Weight: 88.2 kg

DRUGS (2)
  1. LAMICTAL [Suspect]
     Indication: BIPOLAR DISORDER
     Dosage: 400MG PER DAY
     Route: 048
     Dates: start: 201107
  2. NO CONCURRENT MEDICATION [Concomitant]

REACTIONS (4)
  - Aspartate aminotransferase increased [Not Recovered/Not Resolved]
  - Alanine aminotransferase increased [Unknown]
  - Weight increased [Unknown]
  - Abdominal distension [Unknown]
